FAERS Safety Report 7066819-6 (Version None)
Quarter: 2010Q4

REPORT INFORMATION
  Report Type: 
  Country: None (occurrence: None)
  Receive Date: 20101027
  Receipt Date: 20101020
  Transmission Date: 20110411
  Serious: Yes (Other)
  Sender: FDA-Public Use
  Company Number: US-AMGEN LTD.-KDC429650

PATIENT

DRUGS (10)
  1. DENOSUMAB [Suspect]
     Indication: METASTASES TO BONE
     Dosage: UNK UNK, UNK
     Dates: start: 20100312, end: 20100630
  2. DEXAMETHASONE [Concomitant]
     Dosage: 8 MG, QD
     Route: 048
     Dates: start: 20100503, end: 20100701
  3. LISINOPRIL [Concomitant]
     Dosage: 10 MG, QD
     Route: 048
     Dates: start: 20100410
  4. MORPHINE [Concomitant]
     Dosage: 100 MG, BID
     Route: 048
     Dates: start: 20100503
  5. CALCIUM [Concomitant]
     Dosage: 500 MG, QD
     Route: 048
     Dates: start: 20070201
  6. ERGOCALCIFEROL [Concomitant]
     Dosage: 400 IU, QD
     Route: 048
     Dates: start: 20070201
  7. GLUCOSAMINE [Concomitant]
     Dosage: UNK UNK, QD
     Route: 048
     Dates: start: 20040101
  8. IBUPROFEN [Concomitant]
     Dosage: 400 MG, PRN
     Route: 048
     Dates: start: 20010101
  9. FAMOTIDINE [Concomitant]
     Dosage: 10 MG, PRN
     Route: 048
     Dates: start: 20040101
  10. FISH OIL [Concomitant]
     Dosage: UNK UNK, QD
     Route: 048
     Dates: start: 20060101

REACTIONS (1)
  - OSTEONECROSIS OF JAW [None]
